FAERS Safety Report 4535011-9 (Version None)
Quarter: 2004Q4

REPORT INFORMATION
  Report Type: 
  Country: None (occurrence: None)
  Receive Date: 20041214
  Receipt Date: 20040726
  Transmission Date: 20050328
  Serious: No
  Sender: FDA-Public Use
  Company Number: USA040773524

PATIENT
  Age: 50 Year
  Sex: Male

DRUGS (5)
  1. CIALIS [Suspect]
     Dosage: 20 MG
     Dates: start: 20040724
  2. PROZAC [Concomitant]
  3. MONOPRIL [Concomitant]
  4. TOPROL XL (METOPROLOL SUCCCINATE) [Concomitant]
  5. GLUCOPHAGE [Concomitant]

REACTIONS (1)
  - FLUSHING [None]
